FAERS Safety Report 4952175-3 (Version None)
Quarter: 2006Q1

REPORT INFORMATION
  Report Type: 
  Country: None (occurrence: None)
  Receive Date: 20060317
  Receipt Date: 20060310
  Transmission Date: 20060701
  Serious: No
  Sender: FDA-Public Use
  Company Number: RS005844-AUS

PATIENT
  Sex: Female

DRUGS (5)
  1. RABEPRAZOLE SODIUM [Suspect]
     Indication: GASTROOESOPHAGEAL REFLUX DISEASE
     Dosage: 20 MG, 1 IN 1 D, ORAL
     Route: 048
     Dates: start: 20040323, end: 20050711
  2. RABEPRAZOLE SODIUM [Suspect]
     Indication: GASTROOESOPHAGEAL REFLUX DISEASE
     Dosage: 20 MG, 1 IN 1 D, ORAL
     Route: 048
  3. GLUCOSAMINE (GLUCOSAMINE) [Concomitant]
  4. FISH OIL (FISH OIL) [Concomitant]
  5. CALTRATE              (CALCIUM CARBONATE) [Concomitant]

REACTIONS (3)
  - MOUTH ULCERATION [None]
  - ORAL MUCOSAL BLISTERING [None]
  - SALIVARY GLAND DISORDER [None]
